FAERS Safety Report 15135227 (Version 6)
Quarter: 2018Q3

REPORT INFORMATION
  Report Type: Spontaneous
  Country: CA (occurrence: CA)
  Receive Date: 20180712
  Receipt Date: 20180928
  Transmission Date: 20181010
  Serious: Yes (Hospitalization, Other)
  Sender: FDA-Public Use
  Company Number: CA-CELLTRION INC.-2018CA021164

PATIENT

DRUGS (15)
  1. INFLECTRA [Suspect]
     Active Substance: INFLIXIMAB-DYYB
     Dosage: 500 MG,  ( EVERY 0,2, 6 WEEKS THEN MAINTENANCE: EVERY 4 WEEKS);
     Route: 042
     Dates: start: 20180913
  2. JAMP NYSTATIN [Concomitant]
     Dosage: UNK
  3. LORAZEPAM. [Concomitant]
     Active Substance: LORAZEPAM
     Dosage: UNK
  4. ALFUZOSIN SANDOZ [Concomitant]
     Active Substance: ALFUZOSIN
     Dosage: UNK
  5. JAMP VITAMIN D [Concomitant]
     Dosage: UNK
  6. AZATHIOPRINE TEVA [Concomitant]
     Active Substance: AZATHIOPRINE
     Dosage: UNK
  7. INFLECTRA [Suspect]
     Active Substance: INFLIXIMAB-DYYB
     Dosage: 500 MG, CYCLIC ( EVERY 0,2, 6 WEEKS THEN MAINTENANCE: EVERY 4 WEEKS);
     Route: 042
     Dates: start: 20180617
  8. ALENDRONATE SANDOZ [Concomitant]
     Active Substance: ALENDRONATE SODIUM
     Dosage: UNK
  9. PREDNISONE. [Concomitant]
     Active Substance: PREDNISONE
     Dosage: UNK
  10. TEVA PREGABALIN [Concomitant]
     Active Substance: PREGABALIN
     Dosage: UNK
  11. INFLECTRA [Suspect]
     Active Substance: INFLIXIMAB-DYYB
     Indication: COLITIS ULCERATIVE
     Dosage: 500 MG, CYCLIC ( EVERY 0,2, 6 WEEKS THEN MAINTENANCE: EVERY 4 WEEKS);
     Route: 042
     Dates: start: 20180606
  12. INFLECTRA [Suspect]
     Active Substance: INFLIXIMAB-DYYB
     Dosage: 500 MG, CYCLIC ( EVERY 0,2, 6 WEEKS THEN MAINTENANCE: EVERY 4 WEEKS);
     Route: 042
     Dates: start: 20180716
  13. INFLECTRA [Suspect]
     Active Substance: INFLIXIMAB-DYYB
     Dosage: 500 MG,  ( EVERY 0,2, 6 WEEKS THEN MAINTENANCE: EVERY 4 WEEKS);
     Route: 042
     Dates: start: 20180813
  14. SPIRIVA [Concomitant]
     Active Substance: TIOTROPIUM BROMIDE MONOHYDRATE
     Dosage: UNK
  15. JAMP CALCIUM [Concomitant]
     Dosage: UNK

REACTIONS (6)
  - Testicular disorder [Unknown]
  - Urinary tract infection [Unknown]
  - Chills [Not Recovered/Not Resolved]
  - Condition aggravated [Unknown]
  - Product use issue [Unknown]
  - C-reactive protein increased [Unknown]

NARRATIVE: CASE EVENT DATE: 20180606
